FAERS Safety Report 9901285 (Version 3)
Quarter: 2014Q4

REPORT INFORMATION
  Report Type: Spontaneous
  Country: US (occurrence: US)
  Receive Date: 20140217
  Receipt Date: 20141212
  Transmission Date: 20150529
  Serious: Yes (Hospitalization, Other)
  Sender: FDA-Public Use
  Company Number: US-BAYER-2014-024327

PATIENT
  Age: 36 Year
  Sex: Female
  Weight: 74.83 kg

DRUGS (5)
  1. MIRENA [Suspect]
     Active Substance: LEVONORGESTREL
     Indication: CONTRACEPTION
     Dosage: 20 MCG/24HR, CONT
     Route: 015
     Dates: start: 2005, end: 20100616
  2. IBUPROFEN. [Concomitant]
     Active Substance: IBUPROFEN
  3. MIRENA [Suspect]
     Active Substance: LEVONORGESTREL
     Indication: CONTRACEPTION
     Dosage: 20 MCG/24HR, CONT
     Route: 015
     Dates: start: 20100616, end: 20130311
  4. TORADOL [Concomitant]
     Active Substance: KETOROLAC TROMETHAMINE
  5. VALIUM [Concomitant]
     Active Substance: DIAZEPAM

REACTIONS (9)
  - Uterine perforation [None]
  - Device failure [None]
  - Pain [None]
  - Scar [None]
  - Procedural pain [None]
  - Hysterectomy [None]
  - Embedded device [None]
  - Injury [None]
  - Medical device discomfort [None]

NARRATIVE: CASE EVENT DATE: 201301
